FAERS Safety Report 10691861 (Version 1)
Quarter: 2015Q1

REPORT INFORMATION
  Report Type: Spontaneous
  Country: US (occurrence: US)
  Receive Date: 20150105
  Receipt Date: 20150105
  Transmission Date: 20150720
  Serious: No
  Sender: FDA-Public Use
  Company Number: US-BAYER-2015-000602

PATIENT
  Age: 71 Year
  Sex: Female
  Weight: 61.22 kg

DRUGS (2)
  1. ALEVE PM [Suspect]
     Active Substance: DIPHENHYDRAMINE HYDROCHLORIDE\NAPROXEN SODIUM
     Indication: SLEEP DISORDER THERAPY
     Dosage: 2 DF, ONCE
     Route: 048
     Dates: start: 20141230, end: 20141230
  2. BAYER EXTRA STRENGTH PM [Suspect]
     Active Substance: ASPIRIN\DIPHENHYDRAMINE
     Indication: SLEEP DISORDER THERAPY
     Dosage: 1 DF, PRN
     Route: 048
     Dates: start: 2014

REACTIONS (2)
  - Medication error [None]
  - Medication error [None]

NARRATIVE: CASE EVENT DATE: 2014
